FAERS Safety Report 19405249 (Version 1)
Quarter: 2021Q2

REPORT INFORMATION
  Report Type: Spontaneous
  Country: US (occurrence: US)
  Receive Date: 20210611
  Receipt Date: 20210611
  Transmission Date: 20210717
  Serious: No
  Sender: FDA-Public Use
  Company Number: US-BEH-2021132745

PATIENT
  Sex: Female

DRUGS (1)
  1. HIZENTRA [Suspect]
     Active Substance: HUMAN IMMUNOGLOBULIN G
     Indication: SELECTIVE IGG SUBCLASS DEFICIENCY
     Dosage: 20 MILLIGRAM, QW
     Route: 058
     Dates: start: 201703

REACTIONS (5)
  - Infection [Unknown]
  - Peripheral swelling [Unknown]
  - Joint swelling [Unknown]
  - Illness [Unknown]
  - Dyspnoea [Unknown]
